FAERS Safety Report 4694073-9 (Version None)
Quarter: 2005Q2

REPORT INFORMATION
  Report Type: 
  Country: None (occurrence: None)
  Receive Date: 20050616
  Receipt Date: 20050603
  Transmission Date: 20051028
  Serious: Yes (Hospitalization, Other)
  Sender: FDA-Public Use
  Company Number: 2004006223

PATIENT
  Sex: Female

DRUGS (8)
  1. LIPITOR [Suspect]
     Indication: ILL-DEFINED DISORDER
     Dosage: (80 MG), ORAL
     Route: 048
  2. POTASSIUM CHLORIDE [Concomitant]
  3. FUROSEMIDE [Concomitant]
  4. QUINAPRIL [Concomitant]
  5. AMLODIPINE BESYLATE [Concomitant]
  6. EZETIMIBE [Concomitant]
  7. LAMOTRIGINE [Concomitant]
  8. DIMENHYDRINATE [Concomitant]

REACTIONS (8)
  - CONDITION AGGRAVATED [None]
  - GASTRIC POLYPS [None]
  - GASTROOESOPHAGEAL REFLUX DISEASE [None]
  - INFECTION [None]
  - LARYNGEAL POLYP [None]
  - NAUSEA [None]
  - PHARYNGOLARYNGEAL PAIN [None]
  - PNEUMONIA [None]
